FAERS Safety Report 16325602 (Version 3)
Quarter: 2019Q3

REPORT INFORMATION
  Report Type: Report from Study
  Country: ES (occurrence: ES)
  Receive Date: 20190517
  Receipt Date: 20190902
  Transmission Date: 20191004
  Serious: Yes (Hospitalization)
  Sender: FDA-Public Use
  Company Number: ES-PFIZER INC-2019206161

PATIENT
  Age: 74 Year
  Sex: Male
  Weight: 79 kg

DRUGS (27)
  1. LEUCOVORIN [FOLINIC ACID] [Suspect]
     Active Substance: LEUCOVORIN
     Dosage: 760 MG, CYCLIC (1/24 HR)
     Route: 042
     Dates: start: 20180514, end: 20180514
  2. IPRATROPIUM [Concomitant]
     Active Substance: IPRATROPIUM
     Dosage: 500 MG, UNK
  3. PIPERACILINA [Concomitant]
     Dosage: 4000 MG, (EVERY 8 HOURS)
     Dates: start: 20180601
  4. AFLIBERCEPT [Suspect]
     Active Substance: AFLIBERCEPT
     Dosage: 316 MG, CYCLIC (1/24 HR)
     Route: 042
     Dates: start: 20180514, end: 20180514
  5. BUDESONIDA [Concomitant]
     Dosage: 1000 MG, (EVERY 8 HOURS)
     Dates: start: 20180604
  6. FUROSEMIDE. [Concomitant]
     Active Substance: FUROSEMIDE
     Dosage: 20 MG, 1X/DAY
     Dates: start: 20180528, end: 20180607
  7. SPIRONOLACTONE. [Concomitant]
     Active Substance: SPIRONOLACTONE
     Dosage: 100 MG, UNK
     Dates: start: 20180604, end: 20180609
  8. MIDAZOLAM [Concomitant]
     Active Substance: MIDAZOLAM HYDROCHLORIDE
     Dosage: 5 MG, 1X/DAY
     Dates: start: 20180606, end: 20180607
  9. LEVOMEPROMAZINE [Concomitant]
     Active Substance: LEVOMEPROMAZINE
     Dosage: 25 MG, 1X/DAY
     Dates: start: 20180607
  10. ENOXAPARIN [Concomitant]
     Active Substance: ENOXAPARIN
     Dosage: 40 MG, 1X/DAY
     Dates: start: 20180528
  11. OMEPRAZOL [OMEPRAZOLE] [Concomitant]
     Active Substance: OMEPRAZOLE
     Indication: HYPERTENSION
     Dosage: 5 MG, 1X/DAY
     Route: 048
  12. 5-FU [FLUOROURACIL] [Suspect]
     Active Substance: FLUOROURACIL
     Indication: COLORECTAL CANCER METASTATIC
     Dosage: 760 MG, CYCLIC (1/24 HR)
     Route: 040
     Dates: start: 20180424, end: 20180424
  13. 5-FU [FLUOROURACIL] [Suspect]
     Active Substance: FLUOROURACIL
     Dosage: 4560 MG, CYCLIC (1/48HR)
     Route: 041
     Dates: start: 20180424, end: 20180424
  14. 5-FU [FLUOROURACIL] [Suspect]
     Active Substance: FLUOROURACIL
     Dosage: 4560 MG, CYCLIC ( 1/48HR)
     Route: 041
     Dates: start: 20180514, end: 20180514
  15. ENALAPRIL [Concomitant]
     Active Substance: ENALAPRIL
     Indication: HYPERTENSION
     Dosage: 20 MG, 1X/DAY
     Route: 048
  16. IRINOTECAN HCL [Suspect]
     Active Substance: IRINOTECAN HYDROCHLORIDE
     Dosage: 342 MG, CYCLIC (1/24 HR)
     Route: 042
     Dates: start: 20180514, end: 20180514
  17. DEXAMETASON [DEXAMETHASONE] [Concomitant]
     Active Substance: DEXAMETHASONE
     Dosage: 4000 MG, 1X/DAY
     Dates: start: 20180530
  18. OMEPRAZOL [OMEPRAZOLE] [Concomitant]
     Active Substance: OMEPRAZOLE
     Dosage: 5 MG, QD
  19. IRINOTECAN HCL [Suspect]
     Active Substance: IRINOTECAN HYDROCHLORIDE
     Indication: COLORECTAL CANCER METASTATIC
     Dosage: 342 MG, CYCLIC (1/24 HR)
     Route: 042
     Dates: start: 20180424, end: 20180424
  20. LEUCOVORIN [FOLINIC ACID] [Suspect]
     Active Substance: LEUCOVORIN
     Indication: COLORECTAL CANCER METASTATIC
     Dosage: 760 MG, CYCLIC (1/24 HR)
     Route: 042
     Dates: start: 20180424, end: 20180424
  21. AFLIBERCEPT [Suspect]
     Active Substance: AFLIBERCEPT
     Indication: COLORECTAL CANCER METASTATIC
     Dosage: 316 MG, CYCLIC (1/24 HR)
     Route: 042
     Dates: start: 20180424, end: 20180424
  22. HYDROCHLOROTHIAZIDE. [Concomitant]
     Active Substance: HYDROCHLOROTHIAZIDE
     Dosage: 12.5 MG, 1X/DAY
     Dates: start: 20180528, end: 20180601
  23. CODEINE [Concomitant]
     Active Substance: CODEINE
     Indication: ANALGESIC THERAPY
     Dosage: 126 MG/ML
     Route: 048
     Dates: start: 20180504
  24. AMLODIPINE [Concomitant]
     Active Substance: AMLODIPINE BESYLATE
     Indication: HYPERTENSION
     Dosage: 5 MG, 1X/DAY
     Route: 048
     Dates: end: 20180601
  25. 5-FU [FLUOROURACIL] [Suspect]
     Active Substance: FLUOROURACIL
     Dosage: 760 MG, CYCLIC (1/24 HR)
     Route: 040
     Dates: start: 20180514, end: 20180514
  26. 5-FU [FLUOROURACIL] [Suspect]
     Active Substance: FLUOROURACIL
     Dosage: 4560 MG, CYCLIC (1/48 HR)
     Dates: start: 20180516, end: 20180516
  27. MORPHINE [Concomitant]
     Active Substance: MORPHINE
     Dosage: 5000 MG, 1X/DAY
     Dates: start: 20180601, end: 20180609

REACTIONS (3)
  - Candida infection [Recovered/Resolved]
  - Herpes virus infection [Recovered/Resolved]
  - Oesophagitis [Recovered/Resolved]

NARRATIVE: CASE EVENT DATE: 20180525
